FAERS Safety Report 5028929-4 (Version None)
Quarter: 2006Q2

REPORT INFORMATION
  Report Type: 
  Country: None (occurrence: None)
  Receive Date: 20060619
  Receipt Date: 20060609
  Transmission Date: 20061013
  Serious: Yes (Other)
  Sender: FDA-Public Use
  Company Number: ES-GLAXOSMITHKLINE-B0427775A

PATIENT
  Age: 70 Year
  Sex: Male

DRUGS (9)
  1. AVANDIA [Suspect]
     Dosage: 4MG PER DAY
     Route: 048
     Dates: start: 20041223, end: 20060227
  2. ZANTAC [Suspect]
     Dosage: 150MG PER DAY
  3. SIMVASTATIN [Concomitant]
     Dosage: 10MG PER DAY
  4. FENOFIBRATE [Concomitant]
     Dosage: 200MG PER DAY
  5. ADIRO [Concomitant]
     Dosage: 100MG PER DAY
  6. ANGIOTENSIN-CONVERTING ENZYME INHIBITOR [Concomitant]
  7. ENALAPRIL [Concomitant]
     Dosage: 10MG PER DAY
  8. FOLIC ACID [Concomitant]
     Dosage: 1TAB PER DAY
  9. VITAMIN B-12 [Concomitant]
     Dosage: 1TAB PER DAY

REACTIONS (1)
  - NORMOCHROMIC NORMOCYTIC ANAEMIA [None]
